FAERS Safety Report 18907685 (Version 3)
Quarter: 2021Q2

REPORT INFORMATION
  Report Type: Other
  Country: BD (occurrence: BD)
  Receive Date: 20210218
  Receipt Date: 20210526
  Transmission Date: 20210717
  Serious: Yes (Hospitalization, Other)
  Sender: FDA-Public Use
  Company Number: BD-ROCHE-2771394

PATIENT
  Age: 63 Year
  Sex: Female

DRUGS (8)
  1. HERCEPTIN [Suspect]
     Active Substance: TRASTUZUMAB
     Indication: HER2 POSITIVE BREAST CANCER
     Dosage: LOADING DOSE
     Route: 042
  2. PROFENID [Concomitant]
     Active Substance: KETOPROFEN
     Route: 048
  3. PERJETA [Suspect]
     Active Substance: PERTUZUMAB
     Indication: HER2 POSITIVE BREAST CANCER
     Dosage: LOADING DOSE
     Route: 042
  4. TAXOTERE [Suspect]
     Active Substance: DOCETAXEL
     Indication: PRODUCT USED FOR UNKNOWN INDICATION
     Route: 065
  5. CLINDACIN [Concomitant]
     Route: 048
  6. HERCEPTIN [Suspect]
     Active Substance: TRASTUZUMAB
     Route: 042
  7. PERJETA [Suspect]
     Active Substance: PERTUZUMAB
     Route: 042
  8. LETROZOLE. [Suspect]
     Active Substance: LETROZOLE
     Indication: PRODUCT USED FOR UNKNOWN INDICATION
     Route: 048

REACTIONS (5)
  - Lymphadenectomy [Unknown]
  - Deep vein thrombosis [Unknown]
  - Platelet count decreased [Unknown]
  - Simple mastectomy [Unknown]
  - Diarrhoea [Recovered/Resolved]

NARRATIVE: CASE EVENT DATE: 20201227
